FAERS Safety Report 7424521-2 (Version None)
Quarter: 2011Q2

REPORT INFORMATION
  Report Type: 
  Country: None (occurrence: None)
  Receive Date: 20110419
  Receipt Date: 20110406
  Transmission Date: 20111010
  Serious: Yes (Other)
  Sender: FDA-Public Use
  Company Number: SE-JNJFOC-20110403924

PATIENT
  Age: 36 Year
  Sex: Female

DRUGS (9)
  1. OMEPRAZOLE [Concomitant]
  2. TRADIL [Concomitant]
  3. METOJECT [Concomitant]
     Route: 042
  4. BEHEPAN [Concomitant]
  5. LEVOTHYROXINE SODIUM [Concomitant]
  6. REMICADE [Suspect]
     Indication: JUVENILE ARTHRITIS
     Route: 042
  7. REMICADE [Suspect]
     Route: 042
  8. ALVEDON [Concomitant]
  9. FOLACIN [Concomitant]

REACTIONS (6)
  - NAUSEA [None]
  - URTICARIA [None]
  - INFUSION RELATED REACTION [None]
  - HYPOAESTHESIA ORAL [None]
  - BLOOD PRESSURE INCREASED [None]
  - VERTIGO [None]
